FAERS Safety Report 22018905 (Version 1)
Quarter: 2023Q1

REPORT INFORMATION
  Report Type: Spontaneous
  Country: US (occurrence: US)
  Receive Date: 20230222
  Receipt Date: 20230222
  Transmission Date: 20230418
  Serious: No
  Sender: FDA-Public Use
  Company Number: US-TARO PHARMACEUTICALS USA INC.-2022TAR01121

PATIENT

DRUGS (1)
  1. MINOXIDIL [Suspect]
     Active Substance: MINOXIDIL
     Indication: Alopecia
     Dosage: UNK, OD, HALF CAPFUL, TOP AND CROWN OF SCALP
     Route: 061
     Dates: start: 2022

REACTIONS (2)
  - Disease recurrence [Not Recovered/Not Resolved]
  - Intentional product misuse [Unknown]
